FAERS Safety Report 18600209 (Version 1)
Quarter: 2020Q4

REPORT INFORMATION
  Report Type: Spontaneous
  Country: US (occurrence: US)
  Receive Date: 20201210
  Receipt Date: 20201210
  Transmission Date: 20210114
  Serious: Yes (Other)
  Sender: FDA-Public Use
  Company Number: None

PATIENT
  Age: 86 Year
  Sex: Female
  Weight: 138 kg

DRUGS (1)
  1. BAMLANIVIMAB. [Suspect]
     Active Substance: BAMLANIVIMAB
     Indication: COVID-19
     Dosage: ?          OTHER FREQUENCY:ONCE;?
     Route: 041
     Dates: start: 20201130, end: 20201130

REACTIONS (5)
  - Respiratory tract congestion [None]
  - Pyrexia [None]
  - Malaise [None]
  - Intentional product use issue [None]
  - Cough [None]

NARRATIVE: CASE EVENT DATE: 20201201
